FAERS Safety Report 17066238 (Version 1)
Quarter: 2019Q4

REPORT INFORMATION
  Report Type: Spontaneous
  Country: US (occurrence: US)
  Receive Date: 20191024
  Receipt Date: 20191024
  Transmission Date: 20200122
  Serious: No
  Sender: FDA-Public Use
  Company Number: None

PATIENT
  Age: 44 Year
  Sex: Male

DRUGS (1)
  1. TACROLIMUS CAP 1MG [Suspect]
     Active Substance: TACROLIMUS
     Route: 048
     Dates: start: 201806

REACTIONS (4)
  - Diabetes mellitus [None]
  - Blood cholesterol increased [None]
  - Toothache [None]
  - Condition aggravated [None]

NARRATIVE: CASE EVENT DATE: 20191024
